FAERS Safety Report 10241811 (Version 1)
Quarter: 2014Q1

REPORT INFORMATION
  Report Type: Spontaneous
  Country: US (occurrence: None)
  Receive Date: 20140306
  Receipt Date: 20140306
  Transmission Date: 20141002
  Serious: Yes (Hospitalization)
  Sender: FDA-Public Use
  Company Number: 163-21880-13124548

PATIENT
  Age: 87 Year
  Sex: Male

DRUGS (1)
  1. REVLIMID (LENLIDOMIDE) (CAPSULES) [Suspect]
     Indication: PLASMA CELL MYELOMA
     Route: 048
     Dates: start: 20131121

REACTIONS (2)
  - Dysuria [None]
  - Local swelling [None]
